FAERS Safety Report 12752681 (Version 1)
Quarter: 2016Q3

REPORT INFORMATION
  Report Type: Spontaneous
  Country: US (occurrence: US)
  Receive Date: 20160915
  Receipt Date: 20160915
  Transmission Date: 20161109
  Serious: No
  Sender: FDA-Public Use
  Company Number: None

PATIENT
  Age: 70 Year
  Sex: Female

DRUGS (1)
  1. HARVONI [Suspect]
     Active Substance: LEDIPASVIR\SOFOSBUVIR
     Indication: HEPATITIS C

REACTIONS (5)
  - Hyperhidrosis [None]
  - Hunger [None]
  - Fatigue [None]
  - Nausea [None]
  - Headache [None]

NARRATIVE: CASE EVENT DATE: 20160915
